FAERS Safety Report 16974604 (Version 1)
Quarter: 2019Q4

REPORT INFORMATION
  Report Type: Spontaneous
  Country: US (occurrence: US)
  Receive Date: 20190912
  Receipt Date: 20190912
  Transmission Date: 20200122
  Serious: Yes (Hospitalization)
  Sender: FDA-Public Use
  Company Number: None

PATIENT
  Age: 73 Year
  Sex: Male
  Weight: 89.2 kg

DRUGS (2)
  1. LEUPROLIDE [Suspect]
     Active Substance: LEUPROLIDE
     Dates: end: 20190521
  2. CASODEX [Suspect]
     Active Substance: BICALUTAMIDE
     Dates: end: 20181003

REACTIONS (1)
  - Cystitis radiation [None]

NARRATIVE: CASE EVENT DATE: 20190719
